FAERS Safety Report 22308495 (Version 1)
Quarter: 2023Q2

REPORT INFORMATION
  Report Type: Spontaneous
  Country: US (occurrence: None)
  Receive Date: 20230511
  Receipt Date: 20230511
  Transmission Date: 20230722
  Serious: No
  Sender: FDA-Public Use
  Company Number: US-ROCHE-3229186

PATIENT
  Age: 30 Year
  Sex: Female

DRUGS (1)
  1. OCREVUS [Suspect]
     Active Substance: OCRELIZUMAB
     Indication: Product used for unknown indication
     Route: 065

REACTIONS (11)
  - Throat irritation [Unknown]
  - Pruritus [Unknown]
  - Flushing [Unknown]
  - Paraesthesia [Unknown]
  - Hyperhidrosis [Unknown]
  - Limb discomfort [Unknown]
  - Burning sensation [Unknown]
  - Psoriasis [Unknown]
  - Mouth ulceration [Recovered/Resolved]
  - Gingival pain [Recovered/Resolved]
  - Glossodynia [Recovered/Resolved]
